FAERS Safety Report 6355587-9 (Version None)
Quarter: 2009Q3

REPORT INFORMATION
  Report Type: 
  Country: None (occurrence: None)
  Receive Date: 20090910
  Receipt Date: 20090825
  Transmission Date: 20100115
  Serious: Yes (Hospitalization)
  Sender: FDA-Public Use
  Company Number: 2008AL011307

PATIENT
  Age: 64 Year
  Sex: Male

DRUGS (6)
  1. DIGOXIN [Suspect]
     Indication: ARRHYTHMIA
     Dosage: PO
     Route: 048
  2. PROTONIX [Concomitant]
  3. FOSAMAX [Concomitant]
  4. CELEXA [Concomitant]
  5. SIMVASTATIN [Concomitant]
  6. COREG [Concomitant]

REACTIONS (14)
  - ANAEMIA [None]
  - ANHEDONIA [None]
  - ANXIETY [None]
  - BRADYCARDIA [None]
  - CARDIAC DISORDER [None]
  - DIZZINESS [None]
  - ECONOMIC PROBLEM [None]
  - HYPOTENSION [None]
  - INJURY [None]
  - MUSCULOSKELETAL CHEST PAIN [None]
  - PAIN [None]
  - RENAL FAILURE ACUTE [None]
  - SHOULDER ARTHROPLASTY [None]
  - THERAPEUTIC AGENT TOXICITY [None]
